FAERS Safety Report 4548683-X (Version None)
Quarter: 2005Q1

REPORT INFORMATION
  Report Type: 
  Country: None (occurrence: None)
  Receive Date: 20050107
  Receipt Date: 20050107
  Transmission Date: 20050727
  Serious: No
  Sender: FDA-Public Use
  Company Number: None

PATIENT
  Age: 20 Year
  Sex: Female
  Weight: 70.3075 kg

DRUGS (1)
  1. PITOCIN [Suspect]
     Indication: LABOUR INDUCTION
     Dosage: 12 CC/HR FROM 1000 ML BAG WITH 10 UNITS

REACTIONS (5)
  - ACCIDENTAL OVERDOSE [None]
  - DEVICE FAILURE [None]
  - DRUG EXPOSURE DURING PREGNANCY [None]
  - FOETAL HEART RATE DECREASED [None]
  - UTERINE CONTRACTIONS ABNORMAL [None]
